FAERS Safety Report 8498561-9 (Version None)
Quarter: 2012Q3

REPORT INFORMATION
  Report Type: 
  Country: None (occurrence: None)
  Receive Date: 20120709
  Receipt Date: 20120626
  Transmission Date: 20120928
  Serious: No
  Sender: FDA-Public Use
  Company Number: US-AMGEN-USASP2012039690

PATIENT
  Age: 60 Year
  Sex: Male

DRUGS (1)
  1. ENBREL [Suspect]
     Indication: PSORIATIC ARTHROPATHY
     Dosage: 50 MG, 2 TIMES/WK
     Dates: start: 20060601

REACTIONS (6)
  - HEADACHE [None]
  - GASTROINTESTINAL DISORDER [None]
  - SPLENOMEGALY [None]
  - DYSPEPSIA [None]
  - WEIGHT DECREASED [None]
  - FATIGUE [None]
